FAERS Safety Report 5015233-3 (Version None)
Quarter: 2006Q2

REPORT INFORMATION
  Report Type: 
  Country: None (occurrence: None)
  Receive Date: 20060425
  Receipt Date: 20060102
  Transmission Date: 20061013
  Serious: No
  Sender: FDA-Public Use
  Company Number: 220740

PATIENT
  Age: 16 Year
  Sex: Female
  Weight: 71.7 kg

DRUGS (1)
  1. XOLAIR [Suspect]
     Indication: ASTHMA
     Dosage: 225 MG, Q2W, SUBCUTANEOUS
     Route: 058
     Dates: start: 20050501

REACTIONS (1)
  - HYPERSENSITIVITY [None]
